FAERS Safety Report 5212792-2 (Version None)
Quarter: 2007Q1

REPORT INFORMATION
  Report Type: 
  Country: None (occurrence: None)
  Receive Date: 20070118
  Receipt Date: 20070118
  Transmission Date: 20070707
  Serious: No
  Sender: FDA-Public Use
  Company Number: None

PATIENT
  Age: 57 Year
  Sex: Male
  Weight: 113.3993 kg

DRUGS (1)
  1. TYGACIL [Suspect]
     Indication: POSTOPERATIVE WOUND INFECTION
     Dosage: 50MG Q12H IV BOLUS 6 - 8 WEEKS
     Route: 040

REACTIONS (2)
  - DYSGEUSIA [None]
  - INCREASED APPETITE [None]
